FAERS Safety Report 4649486-8 (Version None)
Quarter: 2005Q2

REPORT INFORMATION
  Report Type: 
  Country: None (occurrence: None)
  Receive Date: 20050428
  Receipt Date: 20050428
  Transmission Date: 20051028
  Serious: Yes (Death)
  Sender: FDA-Public Use
  Company Number: None

PATIENT
  Age: 58 Year
  Sex: Male

DRUGS (4)
  1. OXALIPLATIN [Suspect]
  2. LEUCOVORIN CALCIUM [Suspect]
  3. FLUOROURACIL [Suspect]
  4. ERBITUX [Suspect]

REACTIONS (5)
  - CARDIO-RESPIRATORY ARREST [None]
  - CYANOSIS [None]
  - FALL [None]
  - FOAMING AT MOUTH [None]
  - LOSS OF CONSCIOUSNESS [None]
